FAERS Safety Report 6036632-7 (Version None)
Quarter: 2009Q1

REPORT INFORMATION
  Report Type: 
  Country: None (occurrence: None)
  Receive Date: 20090114
  Receipt Date: 20090102
  Transmission Date: 20090719
  Serious: Yes (Other)
  Sender: FDA-Public Use
  Company Number: US-ROCHE-603714

PATIENT
  Sex: Female
  Weight: 52.6 kg

DRUGS (3)
  1. ACCUTANE [Suspect]
     Indication: ACNE
     Dosage: DOSE: 01 AT AM AND 01 AT PM,
     Route: 048
     Dates: start: 20080902, end: 20081210
  2. YAZ [Concomitant]
     Indication: ACNE
     Dosage: OTHER INDICATION: BIRTH CONTROL, DAILY DOSAGE
     Route: 048
     Dates: start: 20080101
  3. VYVANSE [Concomitant]
     Dosage: DAILY DOSAGE
     Route: 048
     Dates: start: 20080101

REACTIONS (12)
  - ABNORMAL BEHAVIOUR [None]
  - BLOOD CREATINE PHOSPHOKINASE INCREASED [None]
  - BREATH ODOUR [None]
  - DYSPNOEA [None]
  - HEADACHE [None]
  - LOSS OF CONSCIOUSNESS [None]
  - MUSCULAR WEAKNESS [None]
  - PROTEIN URINE PRESENT [None]
  - PUPILS UNEQUAL [None]
  - RED BLOOD CELLS URINE POSITIVE [None]
  - SELF-INJURIOUS IDEATION [None]
  - WHITE BLOOD CELLS URINE POSITIVE [None]
